FAERS Safety Report 23688565 (Version 1)
Quarter: 2024Q1

REPORT INFORMATION
  Report Type: Spontaneous
  Country: CA (occurrence: CA)
  Receive Date: 20240329
  Receipt Date: 20240329
  Transmission Date: 20240410
  Serious: Yes (Hospitalization)
  Sender: FDA-Public Use
  Company Number: CA-TEVA-VS-3176409

PATIENT

DRUGS (2)
  1. MORPHINE SULFATE [Suspect]
     Active Substance: MORPHINE SULFATE
     Indication: Pain
     Dosage: DOSAGE FORM: NOT SPECIFIED
     Route: 065
  2. CODEINE [Suspect]
     Active Substance: CODEINE
     Indication: Pain
     Route: 065

REACTIONS (1)
  - Pancreatitis acute [Unknown]
